FAERS Safety Report 25094731 (Version 1)
Quarter: 2025Q1

REPORT INFORMATION
  Report Type: Spontaneous
  Country: US (occurrence: None)
  Receive Date: 20250318
  Receipt Date: 20250318
  Transmission Date: 20250408
  Serious: Yes (Disabling)
  Sender: FDA-CTU
  Company Number: None

PATIENT
  Age: 62 Year
  Sex: Female
  Weight: 58.5 kg

DRUGS (27)
  1. TALTZ [Suspect]
     Active Substance: IXEKIZUMAB
     Indication: Psoriasis
     Route: 058
     Dates: start: 20220518, end: 20250110
  2. TALTZ [Suspect]
     Active Substance: IXEKIZUMAB
     Indication: Psoriatic arthropathy
  3. SOTYKTU [Suspect]
     Active Substance: DEUCRAVACITINIB
     Indication: Drug therapy
     Dosage: 1 TABLET AT BEDTIME ORAL
     Route: 048
     Dates: end: 20250317
  4. SYNTHROID [Concomitant]
     Active Substance: LEVOTHYROXINE SODIUM
  5. CYTOMEL [Concomitant]
     Active Substance: LIOTHYRONINE SODIUM
  6. ALLOPURINOL [Concomitant]
     Active Substance: ALLOPURINOL
  7. cochcine [Concomitant]
  8. VALTREX [Concomitant]
     Active Substance: VALACYCLOVIR HYDROCHLORIDE
  9. DUTASTERIDE [Concomitant]
     Active Substance: DUTASTERIDE
  10. LEVETIRACETAM [Concomitant]
     Active Substance: LEVETIRACETAM
  11. REPATHA [Concomitant]
     Active Substance: EVOLOCUMAB
  12. NALTREXONE [Concomitant]
     Active Substance: NALTREXONE
  13. CLONIDINE [Concomitant]
     Active Substance: CLONIDINE
  14. PROGESTERONE [Concomitant]
     Active Substance: PROGESTERONE
  15. TESTOSTERONE [Concomitant]
     Active Substance: TESTOSTERONE
  16. tofacitinib/niacinamide [Concomitant]
  17. CLARITIN [Concomitant]
     Active Substance: LORATADINE
  18. PEPCID [Concomitant]
     Active Substance: FAMOTIDINE
  19. PREDNISOLONE [Concomitant]
     Active Substance: PREDNISOLONE
  20. xiidra OU [Concomitant]
  21. ketotifen OU [Concomitant]
  22. muro 128 OU [Concomitant]
  23. SKYRIZI [Concomitant]
     Active Substance: RISANKIZUMAB-RZAA
  24. MAGNESIUM [Concomitant]
     Active Substance: MAGNESIUM
  25. KELP [Concomitant]
     Active Substance: KELP
  26. VITAMIN D [Concomitant]
     Active Substance: VITAMIN D NOS
  27. alpha lipoic acid DHEA [Concomitant]

REACTIONS (3)
  - Inflammatory bowel disease [None]
  - Epilepsy [None]
  - Gastritis [None]

NARRATIVE: CASE EVENT DATE: 20250110
